FAERS Safety Report 12617640 (Version 1)
Quarter: 2016Q3

REPORT INFORMATION
  Report Type: Spontaneous
  Country: US (occurrence: None)
  Receive Date: 20160802
  Receipt Date: 20160802
  Transmission Date: 20161109
  Serious: No
  Sender: FDA-Public Use
  Company Number: None

PATIENT
  Sex: Male

DRUGS (2)
  1. OMEPRAZOLE 20MG [Suspect]
     Active Substance: OMEPRAZOLE
  2. PANTOPRAZOLE [Suspect]
     Active Substance: PANTOPRAZOLE SODIUM

REACTIONS (4)
  - Drug ineffective [None]
  - Economic problem [None]
  - Hiatus hernia [None]
  - Gastritis [None]
